FAERS Safety Report 5487116-6 (Version None)
Quarter: 2007Q4

REPORT INFORMATION
  Report Type: 
  Country: None (occurrence: None)
  Receive Date: 20071016
  Receipt Date: 20071005
  Transmission Date: 20080405
  Serious: Yes (Hospitalization)
  Sender: FDA-Public Use
  Company Number: JP-ROCHE-513242

PATIENT
  Age: 27 Month
  Sex: Female
  Weight: 11 kg

DRUGS (2)
  1. ROCEPHIN [Suspect]
     Dosage: ROUTE: INTRAVENOUS (NOT OTHERWISE SPECIFIED)
     Route: 042
     Dates: start: 20070801, end: 20070818
  2. VANCOMYCIN [Concomitant]
     Dosage: ROUTE: INTRAVENOUS (NOT OTHERWISE SPECIFIED)
     Route: 042
     Dates: start: 20070801, end: 20070810

REACTIONS (1)
  - CHOLELITHIASIS [None]
